FAERS Safety Report 6048309-2 (Version None)
Quarter: 2009Q1

REPORT INFORMATION
  Report Type: 
  Country: None (occurrence: None)
  Receive Date: 20090121
  Receipt Date: 20090121
  Transmission Date: 20090719
  Serious: No
  Sender: FDA-Public Use
  Company Number: None

PATIENT
  Age: 27 Year
  Sex: Female
  Weight: 55.3388 kg

DRUGS (1)
  1. CURA HEAT PENETRATING WITH LIQUID CAPSACIN KOBAYASHI [Suspect]
     Indication: MYALGIA
     Dosage: TOPICAL APPLICATION ONCE TOP
     Route: 061
     Dates: end: 20081022

REACTIONS (5)
  - APPLICATION SITE ERYTHEMA [None]
  - APPLICATION SITE IRRITATION [None]
  - APPLICATION SITE PAIN [None]
  - APPLICATION SITE SWELLING [None]
  - PAIN [None]
